FAERS Safety Report 9704068 (Version 1)
Quarter: 2013Q4

REPORT INFORMATION
  Report Type: Spontaneous
  Country: IL (occurrence: IL)
  Receive Date: 20131122
  Receipt Date: 20131122
  Transmission Date: 20140711
  Serious: Yes (Disabling, Other)
  Sender: FDA-Public Use
  Company Number: IL-INCYTE CORPORATION-2013IN002711

PATIENT
  Age: 80 Year
  Sex: Male
  Weight: 40 kg

DRUGS (1)
  1. JAKAVI [Suspect]
     Indication: MYELOFIBROSIS
     Dosage: 10 MG, BID
     Route: 048
     Dates: start: 20130501, end: 20131015

REACTIONS (1)
  - Acute myeloid leukaemia [Not Recovered/Not Resolved]
